FAERS Safety Report 9441583 (Version 1)
Quarter: 2013Q3

REPORT INFORMATION
  Report Type: Spontaneous
  Country: KZ (occurrence: KZ)
  Receive Date: 20130806
  Receipt Date: 20130806
  Transmission Date: 20140515
  Serious: Yes (Other)
  Sender: FDA-Public Use
  Company Number: KZ-ROCHE-1256175

PATIENT
  Age: 60 Year
  Sex: Female

DRUGS (3)
  1. LUCENTIS [Suspect]
     Indication: RETINAL VEIN OCCLUSION
     Route: 050
     Dates: start: 20130717
  2. TOBREX [Concomitant]
     Route: 065
  3. VIGAMOX [Concomitant]
     Route: 065

REACTIONS (4)
  - Angioedema [Recovered/Resolved]
  - Macular oedema [Recovering/Resolving]
  - Cough [Recovered/Resolved]
  - Hypertension [Unknown]
